FAERS Safety Report 16335446 (Version 1)
Quarter: 2019Q2

REPORT INFORMATION
  Report Type: Report from Study
  Country: US (occurrence: US)
  Receive Date: 20190521
  Receipt Date: 20190521
  Transmission Date: 20190711
  Serious: Yes (Other)
  Sender: FDA-Public Use
  Company Number: US-ROCHE-2321089

PATIENT
  Age: 23 Year
  Sex: Female
  Weight: 51 kg

DRUGS (2)
  1. DIAZEPAM. [Suspect]
     Active Substance: DIAZEPAM
     Indication: TETANUS
     Dosage: TWO HOURLY
     Route: 048
  2. DIAZEPAM. [Suspect]
     Active Substance: DIAZEPAM
     Dosage: TWO HOURLY
     Route: 048

REACTIONS (1)
  - Locked-in syndrome [Recovered/Resolved]
